FAERS Safety Report 7238995-3 (Version None)
Quarter: 2011Q1

REPORT INFORMATION
  Report Type: 
  Country: None (occurrence: None)
  Receive Date: 20110121
  Receipt Date: 20110117
  Transmission Date: 20110831
  Serious: Yes (Hospitalization, Other)
  Sender: FDA-Public Use
  Company Number: US-PFIZER INC-2011011095

PATIENT
  Sex: Female
  Weight: 82.993 kg

DRUGS (9)
  1. LIPITOR [Interacting]
     Dosage: 40 MG, 1X/DAY
     Dates: end: 20101001
  2. LIPITOR [Interacting]
     Indication: CARDIAC DISORDER
     Dosage: 10 MG, 1X/DAY
     Route: 048
  3. NORVASC [Concomitant]
     Indication: HYPERTENSION
     Dosage: 10 MG, 1X/DAY
  4. LYRICA [Concomitant]
     Indication: FIBROMYALGIA
     Dosage: 75 MG, 2X/DAY
  5. LORTAB [Concomitant]
     Indication: PAIN
     Dosage: 10 MG, 3X/DAY
  6. FLEXERIL [Concomitant]
     Indication: MUSCLE RELAXANT THERAPY
     Dosage: 5 MG, 1X/DAY
  7. MORPHINE [Suspect]
     Indication: MUSCLE SPASMS
     Dosage: UNK
  8. AYGESTIN [Interacting]
     Indication: CERVIX CARCINOMA
     Dosage: 5 MG, 2X/DAY
     Dates: start: 20090401
  9. TIZANIDINE [Concomitant]
     Indication: SPINAL CORD INJURY
     Dosage: 4 MG, 3X/DAY

REACTIONS (3)
  - MYOCARDIAL INFARCTION [None]
  - HEPATIC ENZYME INCREASED [None]
  - DRUG INTERACTION [None]
